FAERS Safety Report 7502104-3 (Version None)
Quarter: 2011Q2

REPORT INFORMATION
  Report Type: 
  Country: None (occurrence: None)
  Receive Date: 20110525
  Receipt Date: 20110513
  Transmission Date: 20111010
  Serious: Yes (Other)
  Sender: FDA-Public Use
  Company Number: US-SOLVAY-00211003985

PATIENT
  Age: 667 Month
  Sex: Male
  Weight: 102.27 kg

DRUGS (10)
  1. TRICOR [Concomitant]
     Indication: HYPERLIPIDAEMIA
     Dosage: DAILY DOSE:  UNKNOWN
     Route: 065
  2. BENICAR [Concomitant]
     Indication: HYPERTENSION
     Dosage: DAILY DOSE:  UNKNOWN
     Route: 065
  3. FELODIPINE [Concomitant]
     Indication: HYPERTENSION
     Dosage: DAILY DOSE:  UNKNOWN
     Route: 065
  4. ADVAIR DISC [Concomitant]
     Indication: ASTHMA
     Dosage: DAILY DOSE:  UNKNOWN
     Route: 065
  5. SUBOXONE [Concomitant]
     Indication: PAIN
     Dosage: DAILY DOSE:  UNKNOWN
     Route: 065
  6. ATENOLOL [Concomitant]
     Indication: HYPERTENSION
     Dosage: DAILY DOSE:  UNKNOWN
     Route: 065
  7. LASIX [Concomitant]
     Indication: HYPERTENSION
     Dosage: DAILY DOSE:  UNKNOWN
     Route: 065
  8. ANDROGEL [Suspect]
     Indication: ANDROGEN REPLACEMENT THERAPY
     Dosage: DAILY DOSE: 10 GRAM(S)
     Route: 062
     Dates: start: 20070101
  9. PROVENTAL [Concomitant]
     Indication: ASTHMA
     Dosage: DAILY DOSE:  UNKNOWN
     Route: 065
  10. ROSERAM [Concomitant]
     Indication: SLEEP DISORDER
     Dosage: DAILY DOSE:  UNKNOWN
     Route: 065

REACTIONS (2)
  - RETINAL DETACHMENT [None]
  - VISUAL IMPAIRMENT [None]
